FAERS Safety Report 12933815 (Version 1)
Quarter: 2016Q4

REPORT INFORMATION
  Report Type: Spontaneous
  Country: US (occurrence: US)
  Receive Date: 20161111
  Receipt Date: 20161111
  Transmission Date: 20170207
  Serious: No
  Sender: FDA-Public Use
  Company Number: US-PFIZER INC-2016523466

PATIENT
  Age: 6 Year
  Sex: Male

DRUGS (3)
  1. QUILLIVANT XR [Suspect]
     Active Substance: METHYLPHENIDATE HYDROCHLORIDE
     Indication: ATTENTION DEFICIT/HYPERACTIVITY DISORDER
     Dosage: 5 ML, UNK
     Dates: start: 201605
  2. QUILLIVANT XR [Suspect]
     Active Substance: METHYLPHENIDATE HYDROCHLORIDE
     Indication: PSYCHOMOTOR HYPERACTIVITY
     Dosage: 6 ML, UNK
     Dates: start: 201608
  3. NYQUIL CHILDRENS [Concomitant]
     Indication: COUGH
     Dosage: UNK

REACTIONS (5)
  - Drug effect incomplete [Unknown]
  - Fatigue [Unknown]
  - Drug dispensing error [Unknown]
  - Nervousness [Unknown]
  - Disturbance in attention [Unknown]

NARRATIVE: CASE EVENT DATE: 201608
